FAERS Safety Report 13412496 (Version 2)
Quarter: 2018Q1

REPORT INFORMATION
  Report Type: Spontaneous
  Country: US (occurrence: US)
  Receive Date: 20170406
  Receipt Date: 20180118
  Transmission Date: 20180508
  Serious: No
  Sender: FDA-Public Use
  Company Number: US-JNJFOC-20170309121

PATIENT
  Sex: Male

DRUGS (6)
  1. RISPERDAL [Suspect]
     Active Substance: RISPERIDONE
     Indication: OPPOSITIONAL DEFIANT DISORDER
     Dosage: IN VARYING DOSE OF 0.25, 0.5 AND 01 MG
     Route: 048
     Dates: start: 20111216, end: 20120719
  2. RISPERIDONE. [Suspect]
     Active Substance: RISPERIDONE
     Indication: ATTENTION DEFICIT/HYPERACTIVITY DISORDER
     Dosage: IN VARYING DOSE OF 0.25, 0.5 AND 01 MG
     Route: 048
     Dates: start: 20100413, end: 20111028
  3. RISPERDAL [Suspect]
     Active Substance: RISPERIDONE
     Indication: BIPOLAR DISORDER
     Dosage: IN VARYING DOSE OF 0.25, 0.5 AND 01 MG
     Route: 048
     Dates: start: 20111216, end: 20120719
  4. RISPERIDONE. [Suspect]
     Active Substance: RISPERIDONE
     Indication: OPPOSITIONAL DEFIANT DISORDER
     Dosage: IN VARYING DOSE OF 0.25, 0.5 AND 01 MG
     Route: 048
     Dates: start: 20100413, end: 20111028
  5. RISPERDAL [Suspect]
     Active Substance: RISPERIDONE
     Indication: ATTENTION DEFICIT/HYPERACTIVITY DISORDER
     Dosage: IN VARYING DOSE OF 0.25, 0.5 AND 01 MG
     Route: 048
     Dates: start: 20111216, end: 20120719
  6. RISPERIDONE. [Suspect]
     Active Substance: RISPERIDONE
     Indication: BIPOLAR DISORDER
     Dosage: IN VARYING DOSE OF 0.25, 0.5 AND 01 MG
     Route: 048
     Dates: start: 20100413, end: 20111028

REACTIONS (3)
  - Emotional disorder [Unknown]
  - Nightmare [Unknown]
  - Gynaecomastia [Unknown]

NARRATIVE: CASE EVENT DATE: 2010
